FAERS Safety Report 5041555-6 (Version None)
Quarter: 2006Q2

REPORT INFORMATION
  Report Type: 
  Country: None (occurrence: None)
  Receive Date: 20060627
  Receipt Date: 20060613
  Transmission Date: 20061013
  Serious: Yes (Hospitalization, Other)
  Sender: FDA-Public Use
  Company Number: 2006075620

PATIENT
  Age: 43 Year
  Sex: Female
  Weight: 92.0802 kg

DRUGS (1)
  1. CELEBREX [Suspect]
     Indication: ILL-DEFINED DISORDER
     Dosage: 100 MG (100 MG, 1 IN 1 D)

REACTIONS (3)
  - BRAIN DAMAGE [None]
  - CONVULSION [None]
  - PERIPHERAL NERVE INJURY [None]
